FAERS Safety Report 8849289 (Version 1)
Quarter: 2012Q4

REPORT INFORMATION
  Report Type: 
  Country: US (occurrence: US)
  Receive Date: 20121019
  Receipt Date: 20121019
  Transmission Date: 20130627
  Serious: No
  Sender: FDA-Public Use
  Company Number: US-009507513-1209USA008639

PATIENT
  Sex: Female

DRUGS (4)
  1. VICTRELIS [Suspect]
     Indication: HEPATITIS C
     Dosage: 200 milligram/four capsules TID
     Route: 048
     Dates: start: 201203
  2. PEGASYS [Suspect]
  3. COPEGUS [Suspect]
  4. PEGINTRON [Suspect]

REACTIONS (2)
  - Dysgeusia [Recovering/Resolving]
  - Gastroenteritis viral [Unknown]
